FAERS Safety Report 7582786-0 (Version None)
Quarter: 2011Q2

REPORT INFORMATION
  Report Type: 
  Country: None (occurrence: None)
  Receive Date: 20110630
  Receipt Date: 20110627
  Transmission Date: 20111010
  Serious: Yes (Other)
  Sender: FDA-Public Use
  Company Number: US-PFIZER INC-2010070293

PATIENT
  Sex: Male

DRUGS (4)
  1. LIPITOR [Suspect]
     Dosage: UNK
  2. MULTIVITAMINS, COMBINATIONS [Concomitant]
  3. INTERLEUKIN-2 [Suspect]
     Dosage: UNK
  4. PROBIOTICA [Concomitant]

REACTIONS (4)
  - BLOOD POTASSIUM DECREASED [None]
  - BLOOD PRESSURE INCREASED [None]
  - METASTATIC RENAL CELL CARCINOMA [None]
  - METASTASES TO CENTRAL NERVOUS SYSTEM [None]
